FAERS Safety Report 4686844-X (Version None)
Quarter: 2005Q2

REPORT INFORMATION
  Report Type: 
  Country: None (occurrence: None)
  Receive Date: 20050609
  Receipt Date: 20050531
  Transmission Date: 20051028
  Serious: Yes (Disabling)
  Sender: FDA-Public Use
  Company Number: US-MERCK-0506USA00101

PATIENT
  Age: 63 Year
  Sex: Female

DRUGS (2)
  1. FOSAMAX [Suspect]
     Indication: OSTEOPOROSIS
     Route: 048
     Dates: start: 20050101, end: 20050517
  2. ESTROGENS (UNSPECIFIED) [Concomitant]
     Route: 065

REACTIONS (3)
  - OTOSCLEROSIS [None]
  - RASH [None]
  - TINNITUS [None]
